FAERS Safety Report 16885528 (Version 1)
Quarter: 2019Q4

REPORT INFORMATION
  Report Type: Spontaneous
  Country: US (occurrence: US)
  Receive Date: 20190809
  Receipt Date: 20190809
  Transmission Date: 20200122
  Serious: Yes (Hospitalization)
  Sender: FDA-Public Use
  Company Number: None

PATIENT
  Sex: Male

DRUGS (8)
  1. MULTI VIT [Concomitant]
     Active Substance: VITAMINS
  2. DEXAMETHASON ELX [Concomitant]
  3. ALEVE [Concomitant]
     Active Substance: NAPROXEN SODIUM
  4. GLUCOS/CHOND [Concomitant]
  5. ESBRIET [Suspect]
     Active Substance: PIRFENIDONE
     Indication: IDIOPATHIC PULMONARY FIBROSIS
     Route: 048
     Dates: start: 20150904
  6. METHYLPRED [Concomitant]
     Active Substance: METHYLPREDNISOLONE
  7. TYLENOL [Concomitant]
     Active Substance: ACETAMINOPHEN
  8. DULOXETINE. [Concomitant]
     Active Substance: DULOXETINE

REACTIONS (1)
  - Knee arthroplasty [None]
